APPROVED DRUG PRODUCT: CLOMIPHENE CITRATE
Active Ingredient: CLOMIPHENE CITRATE
Strength: 50MG
Dosage Form/Route: TABLET;ORAL
Application: A219781 | Product #001 | TE Code: AB
Applicant: NOVITIUM PHARMA LLC
Approved: Oct 17, 2025 | RLD: No | RS: No | Type: RX